FAERS Safety Report 5010670-5 (Version None)
Quarter: 2006Q2

REPORT INFORMATION
  Report Type: 
  Country: None (occurrence: None)
  Receive Date: 20060525
  Receipt Date: 20060309
  Transmission Date: 20061013
  Serious: Yes (Death, Other)
  Sender: FDA-Public Use
  Company Number: PHFR2006GB01089

PATIENT
  Age: 32 Year
  Sex: Male

DRUGS (6)
  1. CLOZARIL [Suspect]
     Indication: SCHIZOPHRENIA
     Route: 048
  2. CLOZARIL [Suspect]
     Route: 048
     Dates: start: 20030917
  3. OLANZAPINE [Suspect]
     Route: 065
  4. PROCYCLIDINE HYDROCHLORIDE 2MG TAB [Suspect]
     Route: 065
  5. DOTHIEPIN HYDROCHLORIDE [Concomitant]
     Route: 065
  6. DIAZEPAM [Concomitant]
     Route: 065

REACTIONS (6)
  - BRAIN OEDEMA [None]
  - CYANOSIS [None]
  - DRUG ABUSER [None]
  - DRUG INTERACTION [None]
  - OVERDOSE [None]
  - PULMONARY CONGESTION [None]
